FAERS Safety Report 5786067-7 (Version None)
Quarter: 2008Q2

REPORT INFORMATION
  Report Type: 
  Country: None (occurrence: None)
  Receive Date: 20080620
  Receipt Date: 20080620
  Transmission Date: 20081010
  Serious: Yes (Hospitalization)
  Sender: FDA-Public Use
  Company Number: None

PATIENT
  Age: 80 Year
  Sex: Female
  Weight: 97.5234 kg

DRUGS (1)
  1. DIGOXIN [Suspect]
     Indication: CARDIAC FAILURE CONGESTIVE
     Dosage: 250MCG DAILY IV BOLUS
     Route: 040
     Dates: start: 20080609, end: 20080612

REACTIONS (2)
  - NAUSEA [None]
  - THERAPEUTIC AGENT TOXICITY [None]
